FAERS Safety Report 8441400 (Version 2)
Quarter: 2014Q1

REPORT INFORMATION
  Report Type: Spontaneous
  Country: US (occurrence: US)
  Receive Date: 20120305
  Receipt Date: 20140128
  Transmission Date: 20141002
  Serious: Yes (Hospitalization)
  Sender: FDA-Public Use
  Company Number: US-GLAXOSMITHKLINE-A0932368A

PATIENT
  Age: 44 Year
  Sex: Male
  Weight: 144.5 kg

DRUGS (1)
  1. AVANDAMET [Suspect]
     Indication: DIABETES MELLITUS
     Dosage: 4MG TWICE PER DAY
     Route: 048
     Dates: start: 20070210, end: 20071210

REACTIONS (4)
  - Angina unstable [Not Recovered/Not Resolved]
  - Myocardial infarction [Unknown]
  - Cardiovascular disorder [Unknown]
  - Coronary arterial stent insertion [Unknown]
